FAERS Safety Report 10469986 (Version 2)
Quarter: 2014Q4

REPORT INFORMATION
  Report Type: Spontaneous
  Country: US (occurrence: None)
  Receive Date: 20140919
  Receipt Date: 20141022
  Transmission Date: 20150528
  Serious: Yes (Death, Other)
  Sender: FDA-Public Use
  Company Number: 2014-19487

PATIENT
  Age: 50 Year
  Sex: Male

DRUGS (8)
  1. MELOXICAM (MELOXICAM) [Concomitant]
     Active Substance: MELOXICAM
  2. LUCENTIS [Concomitant]
     Active Substance: RANIBIZUMAB
     Route: 031
  3. NEBIVOLOL (NEBIVOLOL) (NEBIVOLOL) [Concomitant]
     Active Substance: NEBIVOLOL
  4. TRIAMTERENE (TRIAMTERENE) [Concomitant]
     Active Substance: TRIAMTERENE
  5. LISINOPRIL (LISINOPRIL) [Concomitant]
     Active Substance: LISINOPRIL
  6. METFORMIN [Concomitant]
     Active Substance: METFORMIN HYDROCHLORIDE
  7. ASPIRIN (ACETYLSALICYLIC ACID) [Concomitant]
     Active Substance: ASPIRIN
  8. EYLEA [Suspect]
     Active Substance: AFLIBERCEPT
     Indication: DIABETIC RETINAL OEDEMA
     Dosage: 4 MG MILLIGRAM, SINGLE, OS, INTRAOCULAR?
     Route: 031
     Dates: start: 20140228, end: 20140228

REACTIONS (2)
  - Haemorrhagic stroke [None]
  - Potentiating drug interaction [None]

NARRATIVE: CASE EVENT DATE: 20140409
